FAERS Safety Report 13676626 (Version 6)
Quarter: 2018Q4

REPORT INFORMATION
  Report Type: Spontaneous
  Country: US (occurrence: US)
  Receive Date: 20170622
  Receipt Date: 20181129
  Transmission Date: 20190204
  Serious: Yes (Other)
  Sender: FDA-Public Use
  Company Number: US-PFIZER INC-2017266910

PATIENT
  Age: 56 Year
  Sex: Female
  Weight: 71 kg

DRUGS (23)
  1. TRAMADOL + ACETAMINOFEN [Concomitant]
     Active Substance: ACETAMINOPHEN\TRAMADOL
     Dosage: UNK, 2X/DAY [TRAMADOL 37.5 MG-ACETAMINOPHEN 325 MG] (AS DIRECTED FOR 30 DAYS)
  2. LORAZEPAM. [Concomitant]
     Active Substance: LORAZEPAM
     Indication: NERVOUS SYSTEM DISORDER
     Dosage: 1 MG, 3X/DAY THREE TIMES A DAY BUT THE PATIENT TAKES IT IN MORNING AND NIGHT
     Route: 048
  3. KETOROLAC [Concomitant]
     Active Substance: KETOROLAC\KETOROLAC TROMETHAMINE
     Dosage: 1 ML, UNK
     Route: 030
     Dates: start: 20170524
  4. LYRICA [Suspect]
     Active Substance: PREGABALIN
     Indication: FIBROMYALGIA
     Dosage: 200 MG, TWO TIMES A DA MORNING AND EVENING
     Route: 048
  5. LYRICA [Suspect]
     Active Substance: PREGABALIN
     Indication: MYALGIA
     Dosage: 25 MG, 1 CAPSULE BY MOUTH ONCE A DAY (MIDDAY DOSE), (ONCE A DAY IN BETWEEN 200 MG DOSES)
     Route: 048
  6. LORAZEPAM. [Concomitant]
     Active Substance: LORAZEPAM
     Indication: SLEEP DISORDER
     Dosage: 1 MG, 3X/DAY
     Route: 048
  7. NITROGLYCERINE [Concomitant]
     Active Substance: NITROGLYCERIN
     Indication: CHEST PAIN
     Dosage: 0.4 MG, AS NEEDED (MAY TAKE EVERY 5 MINS FOR A MAX OF 3 TABLETS)
     Route: 060
  8. NITROSTAT [Concomitant]
     Active Substance: NITROGLYCERIN
     Indication: CHEST PAIN
     Dosage: 0.4 MG, AS NEEDED (TAKE EVERY 5 MINS FOR A MAX OF 3 TABLETS)
  9. LYRICA [Suspect]
     Active Substance: PREGABALIN
     Indication: NEUROPATHY PERIPHERAL
     Dosage: 20 MG, IN THE MIDDLE
  10. LYRICA [Suspect]
     Active Substance: PREGABALIN
     Indication: NERVE INJURY
     Dosage: 200 MG, 1 CAPSULE TWICE A DAY
     Route: 048
  11. TRAMADOL. [Concomitant]
     Active Substance: TRAMADOL
     Dosage: UNK, 2X/DAY
  12. TRAMADOL. [Concomitant]
     Active Substance: TRAMADOL
     Dosage: UNK, AS NEEDED (TWICE DAILY)
  13. EPIPEN [Concomitant]
     Active Substance: EPINEPHRINE
     Indication: ANAPHYLACTIC REACTION
     Dosage: 0.3 ML, AS NEEDED
     Route: 030
  14. TRAMADOL. [Concomitant]
     Active Substance: TRAMADOL
     Dosage: UNK
  15. FLUOXETINE [Concomitant]
     Active Substance: FLUOXETINE HYDROCHLORIDE
     Dosage: 20 MG, DAILY (FOR 30 DAYS)
     Route: 048
  16. FLEXERIL [Concomitant]
     Active Substance: CYCLOBENZAPRINE HYDROCHLORIDE
     Dosage: UNK, AS NEEDED (DAILY)
  17. ADDERALL [Concomitant]
     Active Substance: AMPHETAMINE ASPARTATE\AMPHETAMINE SULFATE\DEXTROAMPHETAMINE SACCHARATE\DEXTROAMPHETAMINE SULFATE
     Dosage: UNK
  18. LYRICA [Suspect]
     Active Substance: PREGABALIN
     Indication: MYOSITIS
     Dosage: 25 MG, 1 CAPSULE BY MOUTH DAY PRN
     Route: 048
  19. CYCLOBENZAPRINE. [Concomitant]
     Active Substance: CYCLOBENZAPRINE
     Dosage: 10 MG, AS NEEDED (DAILY)
     Route: 048
  20. DONEPEZIL. [Concomitant]
     Active Substance: DONEPEZIL
     Indication: POST CONCUSSION SYNDROME
     Dosage: 10 MG, DAILY
     Route: 048
  21. TRAMADOL. [Concomitant]
     Active Substance: TRAMADOL
     Indication: CERVICAL SPINAL STENOSIS
     Dosage: UNK, DAILY
  22. DEXTROAMPHETAMINE. [Concomitant]
     Active Substance: DEXTROAMPHETAMINE
     Dosage: 20 MG, 3X/DAY
     Route: 048
  23. TRAMADOL + ACETAMINOFEN [Concomitant]
     Active Substance: ACETAMINOPHEN\TRAMADOL
     Dosage: AS NEEDED [TRAMADOL 37.5 MG-ACETAMINOPHEN 325 MG] (TWICE DAILY/FOR 30 DAYS)
     Route: 048

REACTIONS (21)
  - Arthralgia [Unknown]
  - Pain [Unknown]
  - Cardiac flutter [Unknown]
  - Therapeutic response unexpected [Unknown]
  - Nasopharyngitis [Unknown]
  - Dyspnoea [Unknown]
  - Swelling [Unknown]
  - Body height decreased [Unknown]
  - Intentional product misuse [Unknown]
  - Pre-existing condition improved [Unknown]
  - Muscle rigidity [Unknown]
  - Hot flush [Unknown]
  - Hypoaesthesia [Unknown]
  - Muscular weakness [Unknown]
  - Condition aggravated [Unknown]
  - Sleep disorder [Unknown]
  - Headache [Unknown]
  - Malaise [Unknown]
  - Muscle spasms [Unknown]
  - Myalgia [Unknown]
  - Hyperhidrosis [Unknown]

NARRATIVE: CASE EVENT DATE: 20170510
